FAERS Safety Report 9640856 (Version 1)
Quarter: 2013Q4

REPORT INFORMATION
  Report Type: Report from Study
  Country: US (occurrence: US)
  Receive Date: 20131023
  Receipt Date: 20131023
  Transmission Date: 20140711
  Serious: No
  Sender: FDA-Public Use
  Company Number: US-ABBVIE-12P-163-1009092-00

PATIENT
  Age: 30 Year
  Sex: Female
  Weight: 97.61 kg

DRUGS (4)
  1. LUPRON DEPOT [Suspect]
     Indication: ENDOMETRIOSIS
     Route: 030
     Dates: start: 20121105
  2. NORETHINDRONE ACETATE [Concomitant]
     Indication: PRODUCT USED FOR UNKNOWN INDICATION
     Dosage: 5 MG BY MOUTH DAILY
     Route: 048
  3. TRAMADOL [Concomitant]
     Indication: PAIN
     Route: 048
  4. NAPROXEN [Concomitant]
     Indication: PAIN
     Route: 048

REACTIONS (4)
  - Injection site pain [Recovering/Resolving]
  - Feeling hot [Recovering/Resolving]
  - Crying [Recovering/Resolving]
  - Alopecia [Recovering/Resolving]
